FAERS Safety Report 20957961 (Version 1)
Quarter: 2022Q2

REPORT INFORMATION
  Report Type: Spontaneous
  Country: US (occurrence: None)
  Receive Date: 20220614
  Receipt Date: 20220614
  Transmission Date: 20220721
  Serious: No
  Sender: FDA-Public Use
  Company Number: None

PATIENT

DRUGS (5)
  1. HUMIRA [Suspect]
     Active Substance: ADALIMUMAB
     Indication: Product used for unknown indication
     Dosage: FREQUENCY : EVERY OTHER WEEK;?
     Route: 058
  2. OTEZLA [Suspect]
     Active Substance: APREMILAST
     Dosage: FREQUENCY : TWICE A DAY;?
     Route: 048
  3. Iriamcinolone cream [Concomitant]
     Dates: start: 20200303, end: 20220418
  4. FLUOCINONIDE [Concomitant]
     Active Substance: FLUOCINONIDE
     Dates: start: 20200317, end: 20210629
  5. intralesional kenalog (systemic therapy) [Concomitant]
     Dates: start: 20200407, end: 20220324

REACTIONS (1)
  - Drug ineffective [None]
